FAERS Safety Report 7507985-5 (Version None)
Quarter: 2011Q2

REPORT INFORMATION
  Report Type: 
  Country: None (occurrence: None)
  Receive Date: 20110519
  Receipt Date: 20110512
  Transmission Date: 20111010
  Serious: Yes (Hospitalization)
  Sender: FDA-Public Use
  Company Number: CRC-11-096

PATIENT
  Age: 89 Year
  Sex: Female
  Weight: 99 kg

DRUGS (10)
  1. WARFARIN SODIUM [Concomitant]
  2. GABAPENTIN [Concomitant]
  3. RIVASTIGMINE TARTRATE [Suspect]
     Indication: DEMENTIA
     Dosage: 1 TAB, ONCE, ORALLY
     Route: 048
     Dates: start: 20110324
  4. CITALOPRAM HYDROBROMIDE [Concomitant]
  5. LASIX [Concomitant]
  6. SPIRONOLACTONE [Concomitant]
  7. LORAZEPAM [Concomitant]
  8. CARVEDILOL [Concomitant]
  9. VITAMIN D [Concomitant]
  10. POTASSIUM CHLORIDE [Concomitant]

REACTIONS (3)
  - VOMITING [None]
  - DYSPNOEA [None]
  - DYSSTASIA [None]
